FAERS Safety Report 11729133 (Version 1)
Quarter: 2015Q4

REPORT INFORMATION
  Report Type: Spontaneous
  Country: DE (occurrence: DE)
  Receive Date: 20151112
  Receipt Date: 20151112
  Transmission Date: 20160304
  Serious: Yes (Other)
  Sender: FDA-Public Use
  Company Number: DE-JNJFOC-20141209950

PATIENT
  Age: 57 Year
  Sex: Male

DRUGS (2)
  1. YONDELIS [Suspect]
     Active Substance: TRABECTEDIN
     Indication: LIPOSARCOMA
     Dosage: CYCLES 1-2
     Route: 042
     Dates: start: 20140123, end: 20140213
  2. YONDELIS [Suspect]
     Active Substance: TRABECTEDIN
     Route: 042

REACTIONS (3)
  - Hypertension [Recovered/Resolved]
  - Acute kidney injury [Not Recovered/Not Resolved]
  - Hypertensive crisis [Not Recovered/Not Resolved]

NARRATIVE: CASE EVENT DATE: 20140226
